FAERS Safety Report 8777963 (Version 2)
Quarter: 2012Q4

REPORT INFORMATION
  Report Type: 
  Country: GB (occurrence: GB)
  Receive Date: 20120912
  Receipt Date: 20120925
  Transmission Date: 20130627
  Serious: No
  Sender: FDA-Public Use
  Company Number: PHHY2012GB079038

PATIENT
  Age: 36 Year
  Sex: Male
  Weight: 115 kg

DRUGS (3)
  1. OLANZAPINE [Suspect]
     Indication: SCHIZOPHRENIA
     Dosage: 20 mg, QD
     Route: 048
  2. AMISULPRIDE [Suspect]
     Indication: SCHIZOPHRENIA
     Dosage: 800 mg, QD
     Route: 048
  3. FLUOXETINE [Suspect]
     Indication: DEPRESSED MOOD
     Dosage: 40 mg, QD
     Route: 048

REACTIONS (2)
  - Atrioventricular block first degree [Unknown]
  - Blood prolactin increased [Unknown]
